FAERS Safety Report 10335538 (Version 1)
Quarter: 2014Q3

REPORT INFORMATION
  Report Type: Spontaneous
  Country: US (occurrence: US)
  Receive Date: 20140723
  Receipt Date: 20140723
  Transmission Date: 20150326
  Serious: No
  Sender: FDA-Public Use
  Company Number: US-UNITED THERAPEUTICS-UTC-046652

PATIENT
  Age: 56 Year
  Sex: Female
  Weight: 90.71 kg

DRUGS (2)
  1. ADCIRCA [Concomitant]
     Active Substance: TADALAFIL
  2. TYVASO [Suspect]
     Active Substance: TREPROSTINIL
     Dosage: 18-54 MICROGRAMS
     Dates: start: 20140324

REACTIONS (4)
  - Fatigue [Unknown]
  - Headache [Unknown]
  - Cough [Unknown]
  - Back pain [Unknown]

NARRATIVE: CASE EVENT DATE: 201403
